FAERS Safety Report 12187356 (Version 1)
Quarter: 2016Q1

REPORT INFORMATION
  Report Type: Spontaneous
  Country: DZ (occurrence: DZ)
  Receive Date: 20160317
  Receipt Date: 20160317
  Transmission Date: 20160526
  Serious: Yes (Disabling, Other)
  Sender: FDA-Public Use
  Company Number: DZ-MEDA-2016030020

PATIENT
  Age: 35 Year
  Sex: Male

DRUGS (2)
  1. METHANDROSTENOLONE [Suspect]
     Active Substance: METHANDROSTENOLONE
     Indication: DRUG ABUSE
  2. OXYMETHOLONE [Suspect]
     Active Substance: OXYMETHOLONE
     Indication: DRUG ABUSE

REACTIONS (5)
  - Haemorrhagic stroke [Unknown]
  - Hemiplegia [Recovering/Resolving]
  - Facial paralysis [Unknown]
  - Dysphagia [Recovered/Resolved]
  - Intentional product misuse [Recovered/Resolved]
